FAERS Safety Report 5734140-1 (Version None)
Quarter: 2008Q2

REPORT INFORMATION
  Report Type: 
  Country: None (occurrence: None)
  Receive Date: 20080509
  Receipt Date: 20080424
  Transmission Date: 20081010
  Serious: Yes (Hospitalization)
  Sender: FDA-Public Use
  Company Number: NO-ASTRAZENECA-2008SE02125

PATIENT
  Age: 22804 Day
  Sex: Male

DRUGS (4)
  1. SELO-ZOK [Suspect]
     Dates: start: 20071024
  2. AZD6140 CODE NOT BROKEN [Suspect]
     Indication: ACUTE CORONARY SYNDROME
     Route: 048
     Dates: start: 20071023
  3. SIMVASTATIN [Concomitant]
     Dosage: 40 MG
     Dates: start: 20071022
  4. ALBYL E [Concomitant]
     Dates: start: 20071023

REACTIONS (1)
  - DYSPNOEA EXERTIONAL [None]
